FAERS Safety Report 4277873-9 (Version None)
Quarter: 2004Q1

REPORT INFORMATION
  Report Type: 
  Country: None (occurrence: None)
  Receive Date: 20040121
  Receipt Date: 20030124
  Transmission Date: 20041129
  Serious: Yes (Other)
  Sender: FDA-Public Use
  Company Number: 2003-01-3091

PATIENT
  Age: 33 Year
  Sex: Female

DRUGS (1)
  1. SUBUTEX [Suspect]
     Indication: DRUG DEPENDENCE
     Dosage: 6-2 MG QD SUBLINGUAL
     Route: 060

REACTIONS (2)
  - EPSTEIN-BARR VIRUS INFECTION [None]
  - HEPATITIS ACUTE [None]
